FAERS Safety Report 10184613 (Version 1)
Quarter: 2014Q2

REPORT INFORMATION
  Report Type: Spontaneous
  Country: FR (occurrence: None)
  Receive Date: 20140519
  Receipt Date: 20140519
  Transmission Date: 20141212
  Serious: Yes (Death, Hospitalization)
  Sender: FDA-Public Use
  Company Number: SYM-2014-20862

PATIENT
  Age: 84 Year
  Sex: Female

DRUGS (9)
  1. MONO-TILDIEM LP [Suspect]
     Indication: PRODUCT USED FOR UNKNOWN INDICATION
     Dosage: 1 DOSAGE FORMS, DAILY, ORAL
     Route: 048
  2. SOLUPRED [Suspect]
     Indication: PRODUCT USED FOR UNKNOWN INDICATION
     Dosage: 60 MG, 3 IN 1 D, ORAL
     Route: 048
     Dates: end: 20140207
  3. KARDEGIC [Suspect]
     Indication: PRODUCT USED FOR UNKNOWN INDICATION
     Route: 048
     Dates: end: 20140207
  4. PRIMPERAN [Suspect]
  5. IMOVANE [Suspect]
     Indication: PRODUCT USED FOR UNKNOWN INDICATION
     Dates: end: 20140207
  6. HYDREA [Suspect]
     Indication: ESSENTIAL THROMBOCYTHAEMIA
     Dosage: 2 DOSAGE FORMS, DAILY, ORAL
     Route: 048
     Dates: end: 20140122
  7. XAGRID [Suspect]
     Indication: ESSENTIAL THROMBOCYTHAEMIA
     Dosage: 2 DOSAGE FORMS, DAILY, ORAL
     Route: 048
     Dates: start: 20130703, end: 20131011
  8. NEORECORMON [Suspect]
     Indication: RENAL FAILURE CHRONIC
     Dosage: 3 DOSAGE FORMS, DAILY, ORAL
     Route: 048
     Dates: start: 20130703, end: 20140122
  9. SOLUMEDROL (METHYLPREDNISOLONE SODIUM SUCCINATE) [Concomitant]

REACTIONS (1)
  - Interstitial lung disease [None]
